FAERS Safety Report 12854386 (Version 2)
Quarter: 2016Q4

REPORT INFORMATION
  Report Type: Spontaneous
  Country: US (occurrence: US)
  Receive Date: 20161017
  Receipt Date: 20161018
  Transmission Date: 20170207
  Serious: No
  Sender: FDA-Public Use
  Company Number: US-PFIZER INC-2016477707

PATIENT
  Age: 65 Year
  Sex: Male

DRUGS (2)
  1. DIPHENOXYLATE/ATROPINE [Suspect]
     Active Substance: ATROPINE\DIPHENOXYLATE
     Indication: DIARRHOEA
     Dosage: 10 MG, DAILY
     Route: 048
     Dates: start: 20160522
  2. LYRICA [Suspect]
     Active Substance: PREGABALIN
     Dosage: 450 MG, 3X/DAY
     Route: 048
     Dates: start: 2016

REACTIONS (1)
  - Drug screen false positive [Unknown]
